FAERS Safety Report 12792281 (Version 2)
Quarter: 2017Q1

REPORT INFORMATION
  Report Type: Spontaneous
  Country: US (occurrence: US)
  Receive Date: 20160929
  Receipt Date: 20170317
  Transmission Date: 20170428
  Serious: Yes (Other)
  Sender: FDA-Public Use
  Company Number: US-JNJFOC-20160918142

PATIENT
  Sex: Male

DRUGS (26)
  1. RISPERDAL [Suspect]
     Active Substance: RISPERIDONE
     Indication: SEDATION
     Route: 048
     Dates: start: 199906
  2. RISPERDAL [Suspect]
     Active Substance: RISPERIDONE
     Indication: SEDATION
     Route: 048
     Dates: start: 199905, end: 199906
  3. RISPERDAL [Suspect]
     Active Substance: RISPERIDONE
     Indication: MENTAL DISORDER
     Route: 048
     Dates: end: 200501
  4. RISPERDAL [Suspect]
     Active Substance: RISPERIDONE
     Indication: MENTAL DISORDER
     Route: 048
     Dates: start: 200311
  5. RISPERDAL [Suspect]
     Active Substance: RISPERIDONE
     Indication: MENTAL DISORDER
     Route: 048
     Dates: start: 200008, end: 200107
  6. RISPERDAL [Suspect]
     Active Substance: RISPERIDONE
     Indication: SEDATION
     Route: 048
     Dates: start: 200311
  7. RISPERDAL [Suspect]
     Active Substance: RISPERIDONE
     Indication: SEDATION
     Route: 048
     Dates: start: 200408, end: 200411
  8. RISPERIDONE. [Suspect]
     Active Substance: RISPERIDONE
     Indication: PSYCHOTIC DISORDER
     Route: 048
     Dates: start: 20000822, end: 20031115
  9. RISPERDAL [Suspect]
     Active Substance: RISPERIDONE
     Indication: SEDATION
     Route: 048
     Dates: start: 200211, end: 200310
  10. RISPERDAL [Suspect]
     Active Substance: RISPERIDONE
     Indication: SEDATION
     Route: 048
     Dates: start: 199908, end: 200003
  11. RISPERDAL [Suspect]
     Active Substance: RISPERIDONE
     Indication: MENTAL DISORDER
     Route: 048
     Dates: start: 199905, end: 199906
  12. RISPERDAL [Suspect]
     Active Substance: RISPERIDONE
     Indication: SEDATION
     Route: 048
     Dates: start: 200501
  13. RISPERDAL [Suspect]
     Active Substance: RISPERIDONE
     Indication: MENTAL DISORDER
     Route: 048
     Dates: start: 200006
  14. RISPERDAL [Suspect]
     Active Substance: RISPERIDONE
     Indication: MENTAL DISORDER
     Route: 048
     Dates: start: 200211, end: 200310
  15. RISPERDAL [Suspect]
     Active Substance: RISPERIDONE
     Indication: SEDATION
     Route: 048
     Dates: start: 200006
  16. RISPERDAL [Suspect]
     Active Substance: RISPERIDONE
     Indication: MENTAL DISORDER
     Route: 048
     Dates: start: 200501
  17. RISPERIDONE. [Suspect]
     Active Substance: RISPERIDONE
     Indication: PSYCHOTIC DISORDER
     Route: 048
     Dates: start: 19990630, end: 19990714
  18. RISPERIDONE. [Suspect]
     Active Substance: RISPERIDONE
     Indication: PSYCHOTIC DISORDER
     Route: 048
     Dates: start: 19990527, end: 20010317
  19. RISPERDAL [Suspect]
     Active Substance: RISPERIDONE
     Indication: SEDATION
     Route: 048
     Dates: start: 200008, end: 200107
  20. RISPERDAL [Suspect]
     Active Substance: RISPERIDONE
     Indication: MENTAL DISORDER
     Route: 048
     Dates: start: 200109, end: 200203
  21. RISPERDAL [Suspect]
     Active Substance: RISPERIDONE
     Indication: SEDATION
     Route: 048
     Dates: end: 200501
  22. RISPERDAL [Suspect]
     Active Substance: RISPERIDONE
     Indication: SEDATION
     Route: 048
     Dates: start: 200109, end: 200203
  23. RISPERDAL [Suspect]
     Active Substance: RISPERIDONE
     Indication: MENTAL DISORDER
     Route: 048
     Dates: start: 199908, end: 200003
  24. RISPERDAL [Suspect]
     Active Substance: RISPERIDONE
     Indication: MENTAL DISORDER
     Route: 048
     Dates: start: 200408, end: 200411
  25. RISPERDAL [Suspect]
     Active Substance: RISPERIDONE
     Indication: MENTAL DISORDER
     Route: 048
     Dates: start: 199906
  26. RISPERIDONE. [Suspect]
     Active Substance: RISPERIDONE
     Indication: PSYCHOTIC DISORDER
     Route: 048
     Dates: start: 20000628, end: 20010629

REACTIONS (8)
  - Obesity [Unknown]
  - Treatment noncompliance [Unknown]
  - Gynaecomastia [Unknown]
  - Dyskinesia [Unknown]
  - Hot flush [Unknown]
  - Laziness [Unknown]
  - Extrapyramidal disorder [Unknown]
  - Galactorrhoea [Unknown]

NARRATIVE: CASE EVENT DATE: 2002
